FAERS Safety Report 14903060 (Version 1)
Quarter: 2018Q2

REPORT INFORMATION
  Report Type: Spontaneous
  Country: US (occurrence: US)
  Receive Date: 20180516
  Receipt Date: 20180516
  Transmission Date: 20180711
  Serious: Yes (Hospitalization)
  Sender: FDA-Public Use
  Company Number: US-SA-2017SA122358

PATIENT
  Age: 62 Year
  Sex: Female
  Weight: 87 kg

DRUGS (3)
  1. FLEXPEN [Concomitant]
     Active Substance: UNSPECIFIED INGREDIENT
     Dates: start: 1999
  2. NOVOLOG [Suspect]
     Active Substance: INSULIN ASPART
     Indication: TYPE 2 DIABETES MELLITUS
     Dosage: DOSE: SLIDING SCLE
     Route: 058
     Dates: start: 1999
  3. LANTUS [Suspect]
     Active Substance: INSULIN GLARGINE
     Indication: TYPE 2 DIABETES MELLITUS
     Dosage: DOSE:80 UNIT(S)
     Route: 058
     Dates: start: 1999

REACTIONS (4)
  - Hypotension [Unknown]
  - Hypoglycaemia [Unknown]
  - Hyperglycaemic unconsciousness [Recovered/Resolved]
  - Urinary tract infection [Recovered/Resolved]

NARRATIVE: CASE EVENT DATE: 2015
